FAERS Safety Report 9000540 (Version 2)
Quarter: 2013Q1

REPORT INFORMATION
  Report Type: Spontaneous
  Country: GB (occurrence: None)
  Receive Date: 20121221
  Receipt Date: 20121227
  Transmission Date: 20140127
  Serious: Yes (Disabling, Other)
  Sender: FDA-Public Use
  Company Number: AUR-APL-2012-05408

PATIENT
  Age: 66 Year
  Sex: Female
  Weight: 42 kg

DRUGS (4)
  1. ALENDRONIC ACID (ALENDRONIC ACID) [Suspect]
     Indication: OSTEOPOROSIS
     Route: 048
     Dates: start: 200709, end: 201207
  2. CALCIUM (CALCIUM) [Concomitant]
  3. CO-CODAMOL (PANADEINE CO) [Concomitant]
  4. THYROXINE (LEVOTHYROXINE SODIUM) [Concomitant]

REACTIONS (3)
  - Back pain [None]
  - Malaise [None]
  - Sarcoidosis [None]
